FAERS Safety Report 14401681 (Version 1)
Quarter: 2018Q1

REPORT INFORMATION
  Report Type: Spontaneous
  Country: GB (occurrence: GB)
  Receive Date: 20180117
  Receipt Date: 20180117
  Transmission Date: 20180509
  Serious: Yes (Hospitalization)
  Sender: FDA-Public Use
  Company Number: GB-TEVA-2018-GB-844945

PATIENT
  Age: 84 Year
  Sex: Female
  Weight: 55 kg

DRUGS (11)
  1. BUMETANIDE. [Suspect]
     Active Substance: BUMETANIDE
     Indication: CHRONIC LEFT VENTRICULAR FAILURE
     Dosage: 2 MILLIGRAM DAILY;
     Route: 048
  2. LEVOTHYROXINE SODIUM. [Concomitant]
     Active Substance: LEVOTHYROXINE SODIUM
  3. BISOPROLOL [Suspect]
     Active Substance: BISOPROLOL
     Indication: CHRONIC LEFT VENTRICULAR FAILURE
     Dosage: 3.75 MILLIGRAM DAILY;
     Route: 048
  4. ATORVASTATIN [Concomitant]
     Active Substance: ATORVASTATIN
  5. GLYCERYL TRINITRATE [Concomitant]
     Active Substance: NITROGLYCERIN
  6. PARACETAMOL [Concomitant]
     Active Substance: ACETAMINOPHEN
  7. NOVOMIX [Concomitant]
     Active Substance: INSULIN ASPART
  8. SPIRONOLACTONE. [Suspect]
     Active Substance: SPIRONOLACTONE
     Indication: CHRONIC LEFT VENTRICULAR FAILURE
     Dosage: 25 MILLIGRAM DAILY; IN THE MORNING
     Route: 048
  9. BETAHISTINE [Concomitant]
     Active Substance: BETAHISTINE
  10. ISOSORBIDE MONONITRATE. [Suspect]
     Active Substance: ISOSORBIDE MONONITRATE
     Indication: ANGINA PECTORIS
     Dosage: 60 MILLIGRAM DAILY; IN THE MORNING
     Route: 048
     Dates: end: 20171013
  11. CANDESARTAN CILEXETIL. [Suspect]
     Active Substance: CANDESARTAN CILEXETIL
     Indication: CHRONIC LEFT VENTRICULAR FAILURE
     Dosage: 2 MILLIGRAM DAILY; IN THE MORNING
     Route: 048

REACTIONS (3)
  - Dizziness [Unknown]
  - Balance disorder [Unknown]
  - Orthostatic hypotension [Recovered/Resolved]

NARRATIVE: CASE EVENT DATE: 201705
